FAERS Safety Report 7635340-6 (Version None)
Quarter: 2011Q3

REPORT INFORMATION
  Report Type: 
  Country: None (occurrence: None)
  Receive Date: 20110718
  Receipt Date: 20110704
  Transmission Date: 20111222
  Serious: Yes (Other)
  Sender: FDA-Public Use
  Company Number: EU-2011-10116

PATIENT

DRUGS (1)
  1. SAMSCA [Suspect]
     Indication: HYPONATRAEMIA

REACTIONS (1)
  - OSMOTIC DEMYELINATION SYNDROME [None]
